FAERS Safety Report 13870246 (Version 1)
Quarter: 2017Q3

REPORT INFORMATION
  Report Type: Spontaneous
  Country: US (occurrence: US)
  Receive Date: 20170815
  Receipt Date: 20170815
  Transmission Date: 20171127
  Serious: Yes (Other)
  Sender: FDA-Public Use
  Company Number: US-TEVA-796160USA

PATIENT
  Age: 31 Year
  Sex: Male

DRUGS (3)
  1. CISPLATIN. [Suspect]
     Active Substance: CISPLATIN
     Indication: EXTRAGONADAL PRIMARY SEMINOMA (PURE)
     Dosage: 4 CYCLES
     Route: 065
  2. ETOPOSIDE. [Concomitant]
     Active Substance: ETOPOSIDE
     Indication: EXTRAGONADAL PRIMARY SEMINOMA (PURE)
     Dosage: 4 CYCLES
     Route: 065
  3. BLEOMYCIN [Concomitant]
     Active Substance: BLEOMYCIN SULFATE
     Indication: EXTRAGONADAL PRIMARY SEMINOMA (PURE)
     Dosage: 3 CYCLES
     Route: 065

REACTIONS (1)
  - Vena cava thrombosis [Recovered/Resolved]
